FAERS Safety Report 6559714-X (Version None)
Quarter: 2010Q1

REPORT INFORMATION
  Report Type: 
  Country: None (occurrence: None)
  Receive Date: 20100129
  Receipt Date: 20090909
  Transmission Date: 20100710
  Serious: No
  Sender: FDA-Public Use
  Company Number: US-ABBOTT-09P-163-0596103-00

PATIENT
  Sex: Female
  Weight: 104.42 kg

DRUGS (4)
  1. HUMIRA [Suspect]
     Indication: PSORIASIS
     Dosage: DAY 1
     Dates: start: 20090908
  2. BLOOD PRESSURE MEDS [Concomitant]
     Indication: BLOOD PRESSURE
  3. CHOLESTEROL MED [Concomitant]
     Indication: BLOOD CHOLESTEROL
  4. PAIN PILLS [Concomitant]
     Indication: PAIN

REACTIONS (2)
  - HEADACHE [None]
  - SINUS HEADACHE [None]
